FAERS Safety Report 9772419 (Version 1)
Quarter: 2013Q4

REPORT INFORMATION
  Report Type: Spontaneous
  Country: CZ (occurrence: None)
  Receive Date: 20131217
  Receipt Date: 20131217
  Transmission Date: 20140711
  Serious: Yes (Hospitalization, Other)
  Sender: FDA-Public Use
  Company Number: UTC-041648

PATIENT
  Age: 69 Year
  Sex: Female
  Weight: 59 kg

DRUGS (8)
  1. REMODULIN [Suspect]
     Indication: PULMONARY HYPERTENSION
     Dosage: 47.52 UG/KG (0.033 UG/KG,1 IN 1 MIN),SUBCUTANEOUS
     Route: 058
     Dates: start: 20121105, end: 20131101
  2. VERSPIRON (SPIRONOLACTONE) [Concomitant]
  3. FURON (FUROSEMIDE) [Concomitant]
  4. POTASSIUM CHLORIDE [Concomitant]
  5. ATORIS (ATORVASTATIN) [Concomitant]
  6. KINITO (ITOPRIDE) [Concomitant]
  7. STILNOX (ZOLPIDEM) [Concomitant]
  8. TRACLEER (BOSENTAN) [Concomitant]

REACTIONS (4)
  - Local swelling [None]
  - Oedema peripheral [None]
  - Drug hypersensitivity [None]
  - Infusion site swelling [None]
